FAERS Safety Report 25275979 (Version 1)
Quarter: 2025Q2

REPORT INFORMATION
  Report Type: Spontaneous
  Country: HR (occurrence: HR)
  Receive Date: 20250507
  Receipt Date: 20250507
  Transmission Date: 20250716
  Serious: Yes (Hospitalization, Other)
  Sender: TEVA
  Company Number: None

PATIENT
  Age: 13 Year
  Sex: Female

DRUGS (7)
  1. LORATADINE [Suspect]
     Active Substance: LORATADINE
     Indication: Product used for unknown indication
     Route: 048
     Dates: start: 20250304, end: 20250304
  2. ACETAMINOPHEN [Suspect]
     Active Substance: ACETAMINOPHEN
     Indication: Product used for unknown indication
     Route: 048
     Dates: start: 20250304, end: 20250304
  3. MONTELUKAST [Suspect]
     Active Substance: MONTELUKAST
     Indication: Product used for unknown indication
     Route: 048
     Dates: start: 20250304, end: 20250304
  4. ZALDIAR [Suspect]
     Active Substance: ACETAMINOPHEN\TRAMADOL HYDROCHLORIDE
     Indication: Product used for unknown indication
     Dosage: 1 {DF} = 37.5 MG TRAMADOL CHLORIDE + 325 MG PARACETAMOL?2-4 TBL
     Route: 048
     Dates: start: 20250304, end: 20250304
  5. DEXKETOPROFEN [Suspect]
     Active Substance: DEXKETOPROFEN
     Indication: Product used for unknown indication
     Route: 048
     Dates: start: 20250304, end: 20250304
  6. IBUPROFEN [Suspect]
     Active Substance: IBUPROFEN
     Indication: Product used for unknown indication
     Route: 048
     Dates: start: 20250304, end: 20250304
  7. BILASTINE [Suspect]
     Active Substance: BILASTINE
     Indication: Product used for unknown indication
     Route: 048
     Dates: start: 20250304, end: 20250304

REACTIONS (4)
  - Suicide attempt [Unknown]
  - Intentional overdose [Unknown]
  - Gait disturbance [Unknown]
  - Somnolence [Unknown]

NARRATIVE: CASE EVENT DATE: 20250304
